FAERS Safety Report 5875269-7 (Version None)
Quarter: 2008Q3

REPORT INFORMATION
  Report Type: 
  Country: None (occurrence: None)
  Receive Date: 20080904
  Receipt Date: 20080825
  Transmission Date: 20090109
  Serious: Yes (Hospitalization)
  Sender: FDA-Public Use
  Company Number: 2008BI015301

PATIENT
  Age: 55 Year
  Sex: Male
  Weight: 72.1219 kg

DRUGS (3)
  1. AVONEX [Suspect]
     Indication: MULTIPLE SCLEROSIS
     Dosage: 30 UG; QW; IM
     Route: 030
     Dates: start: 20080101, end: 20080605
  2. LIPITOR [Concomitant]
  3. TOPROL-XL [Concomitant]

REACTIONS (5)
  - ANGINA PECTORIS [None]
  - ASTHENIA [None]
  - CORONARY ARTERY DISEASE [None]
  - CORONARY ARTERY OCCLUSION [None]
  - INFLUENZA LIKE ILLNESS [None]
